FAERS Safety Report 11178320 (Version 4)
Quarter: 2015Q3

REPORT INFORMATION
  Report Type: Report from Study
  Country: IT (occurrence: IT)
  Receive Date: 20150610
  Receipt Date: 20150924
  Transmission Date: 20151125
  Serious: Yes (Hospitalization, Other)
  Sender: FDA-Public Use
  Company Number: IT-GLAXOSMITHKLINE-IT2015079092

PATIENT
  Age: 64 Year
  Sex: Female
  Weight: 70 kg

DRUGS (65)
  1. DABRAFENIB [Suspect]
     Active Substance: DABRAFENIB
     Indication: MALIGNANT MELANOMA
     Dosage: 150 MG, BID
     Route: 048
     Dates: start: 20140811, end: 20141030
  2. BISOPROLOLO [Concomitant]
     Active Substance: BISOPROLOL FUMARATE
     Dosage: 2.5 MG, BID
     Route: 048
     Dates: start: 20150606, end: 20150621
  3. FUROSEMIDE. [Concomitant]
     Active Substance: FUROSEMIDE
     Indication: POLYURIA
     Dosage: 4 ML, SINGLE
     Route: 042
     Dates: start: 20150605, end: 20150605
  4. FUROSEMIDE. [Concomitant]
     Active Substance: FUROSEMIDE
     Dosage: 25 MG, SINGLE
     Route: 048
     Dates: start: 20150621, end: 20150621
  5. DABRAFENIB [Suspect]
     Active Substance: DABRAFENIB
     Dosage: 100 MG, BID
     Route: 048
     Dates: start: 20141031, end: 20150515
  6. CANRENONE [Concomitant]
     Active Substance: CANRENONE
     Dosage: 100 MG, SINGLE
     Route: 048
     Dates: start: 20150608, end: 20150624
  7. CHOLESTYRAMINE. [Concomitant]
     Active Substance: CHOLESTYRAMINE
     Route: 048
     Dates: start: 20150613, end: 20150628
  8. BISOPROLOLO [Concomitant]
     Active Substance: BISOPROLOL FUMARATE
     Indication: HYPERTENSION
     Dosage: 0.5 DF, SINGLE
     Route: 048
     Dates: start: 20150605, end: 20150605
  9. TACHIPIRINA [Concomitant]
     Active Substance: ACETAMINOPHEN
     Indication: PYREXIA
     Dosage: 500 MG, PRN
     Route: 048
     Dates: start: 20150622, end: 20150722
  10. MEROPENEM. [Concomitant]
     Active Substance: MEROPENEM
     Dosage: 500 MG, TID
     Route: 042
     Dates: start: 20150623, end: 20150623
  11. MEROPENEM. [Concomitant]
     Active Substance: MEROPENEM
     Dosage: 500 MG, BID
     Route: 042
     Dates: start: 20150624, end: 20150624
  12. PHYSIOLOGICAL SOLUTION [Concomitant]
     Route: 042
     Dates: start: 20150623, end: 20150623
  13. FUROSEMIDE. [Concomitant]
     Active Substance: FUROSEMIDE
     Dosage: 40 MG, BID
     Route: 042
     Dates: start: 20150606, end: 20150608
  14. FUROSEMIDE. [Concomitant]
     Active Substance: FUROSEMIDE
     Dosage: 25 MG, SINGLE
     Route: 048
     Dates: start: 20150620, end: 20150620
  15. ALBUMIN HUMAN [Concomitant]
     Active Substance: ALBUMIN (HUMAN)
     Indication: BLOOD ALBUMIN INCREASED
     Dosage: 50 ML, SINGLE
     Route: 042
     Dates: start: 20150605, end: 20150605
  16. ALBUMIN HUMAN [Concomitant]
     Active Substance: ALBUMIN (HUMAN)
     Dosage: 50 ML, SINGLE
     Route: 042
     Dates: start: 20150611, end: 20150611
  17. GLUCOSE SOLUTION [Concomitant]
     Active Substance: DEXTROSE
     Dosage: 250 ML, SINGLE
     Route: 042
     Dates: start: 20150608, end: 20150608
  18. CHOLESTYRAMINE. [Concomitant]
     Active Substance: CHOLESTYRAMINE
     Dosage: 4 G, UNK
     Route: 048
     Dates: start: 20150612, end: 20150612
  19. ALBITAL [Concomitant]
     Active Substance: ALBUMIN (HUMAN)
     Indication: BLOOD ALBUMIN INCREASED
     Dosage: 50 ML, BID
     Route: 042
     Dates: start: 20150619, end: 20150622
  20. ALDACTONE [Concomitant]
     Active Substance: SPIRONOLACTONE
     Indication: HYPERTENSION
     Dosage: 25 MG, 1D
     Route: 048
     Dates: start: 20150625
  21. FUROSEMIDE. [Concomitant]
     Active Substance: FUROSEMIDE
     Dosage: 50 MG, BID
     Route: 048
     Dates: start: 20150612, end: 20150619
  22. CANRENONE [Concomitant]
     Active Substance: CANRENONE
     Indication: HYPOKALAEMIA
     Dosage: 50 MG, 1D
     Route: 048
     Dates: start: 20150606, end: 20150607
  23. ALBUMIN HUMAN [Concomitant]
     Active Substance: ALBUMIN (HUMAN)
     Dosage: 50 ML, BID
     Route: 042
     Dates: start: 20150607, end: 20150610
  24. KCL RETARD [Concomitant]
     Active Substance: POTASSIUM CHLORIDE
     Indication: HYPOKALAEMIA
     Dosage: 1200 MG, TID
     Route: 048
     Dates: start: 20150617, end: 20150630
  25. URSILON [Concomitant]
     Indication: PROPHYLAXIS
     Dosage: 300 MG, SINGLE
     Route: 048
     Dates: start: 20150618, end: 20150618
  26. PHYSIOLOGICAL SOLUTION [Concomitant]
     Route: 042
     Dates: start: 20150607, end: 20150607
  27. PHYSIOLOGICAL SOLUTION [Concomitant]
     Route: 042
     Dates: start: 20150622, end: 20150622
  28. FUROSEMIDE. [Concomitant]
     Active Substance: FUROSEMIDE
     Dosage: 20 MG, SINGLE
     Route: 042
     Dates: start: 20150609, end: 20150609
  29. FUROSEMIDE. [Concomitant]
     Active Substance: FUROSEMIDE
     Dosage: 25 MG, SINGLE
     Route: 048
     Dates: start: 20150623, end: 20150623
  30. K CL RETARD [Concomitant]
     Route: 048
     Dates: start: 20150616, end: 20150616
  31. BISOPROLOLO [Concomitant]
     Active Substance: BISOPROLOL FUMARATE
     Dosage: 2.5 MG, SINGLE
     Route: 048
     Dates: start: 20150622, end: 20150622
  32. URSILON [Concomitant]
     Route: 048
     Dates: start: 20150619
  33. FUROSEMIDE. [Concomitant]
     Active Substance: FUROSEMIDE
     Dosage: 20 MG, BID
     Route: 042
     Dates: start: 20150610, end: 20150610
  34. FUROSEMIDE. [Concomitant]
     Active Substance: FUROSEMIDE
     Dosage: 20 MG, SINGLE
     Route: 042
     Dates: start: 20150619, end: 20150619
  35. FUROSEMIDE. [Concomitant]
     Active Substance: FUROSEMIDE
     Dosage: 2 ML, SINGLE
     Route: 042
     Dates: start: 20150629, end: 20150629
  36. TRAMETINIB [Suspect]
     Active Substance: TRAMETINIB
     Indication: MALIGNANT MELANOMA
     Dosage: 2 MG, QD
     Route: 048
     Dates: start: 20140812, end: 20150515
  37. K CL RETARD [Concomitant]
     Route: 048
     Dates: start: 20150607, end: 20150615
  38. CALCIUM GLUCONATE 10% [Concomitant]
     Active Substance: CALCIUM GLUCONATE
     Indication: HYPOCALCAEMIA
     Dosage: 4.5 MEQ, SINGLE
     Route: 042
     Dates: start: 20150607, end: 20150607
  39. POTASSIUM CANRENOATE [Concomitant]
     Active Substance: CANRENOATE POTASSIUM
     Dosage: 200 MG, SINGLE
     Route: 042
     Dates: start: 20150608, end: 20150608
  40. VITAMIN K1 [Concomitant]
     Active Substance: PHYTONADIONE
     Indication: VITAMIN K DEFICIENCY
     Dosage: 2.5 MG, SINGLE
     Route: 048
     Dates: start: 20150608, end: 20150608
  41. POTASSIUM CHLORIDE. [Concomitant]
     Active Substance: POTASSIUM CHLORIDE
     Indication: HYPOKALAEMIA
     Dosage: 20 MEQ, SINGLE
     Route: 042
     Dates: start: 20150608, end: 20150608
  42. KCL RETARD [Concomitant]
     Active Substance: POTASSIUM CHLORIDE
     Route: 048
     Dates: start: 20150701, end: 20150701
  43. CALCIUM CARBONATE. [Concomitant]
     Active Substance: CALCIUM CARBONATE
     Indication: HYPOCALCAEMIA
     Dosage: 1000 MG, BID
     Route: 048
     Dates: start: 20150608, end: 20150630
  44. BISOPROLOLO [Concomitant]
     Active Substance: BISOPROLOL FUMARATE
     Dosage: 2.5 MG, UNK
     Route: 048
     Dates: start: 20150624
  45. MEROPENEM. [Concomitant]
     Active Substance: MEROPENEM
     Indication: INFECTION
     Dosage: 500 MG, BID
     Route: 042
     Dates: start: 20150622, end: 20150622
  46. INVANZ [Concomitant]
     Active Substance: ERTAPENEM SODIUM
     Indication: INFECTION
     Dosage: 1 G, 1D
     Route: 042
     Dates: start: 20150624, end: 20150629
  47. PHYSIOLOGICAL SOLUTION [Concomitant]
     Indication: INJECTION
     Dosage: 100 ML, SINGLE
     Route: 042
     Dates: start: 20150606, end: 20150606
  48. PHYSIOLOGICAL SOLUTION [Concomitant]
     Route: 042
     Dates: start: 20150608, end: 20150608
  49. PHYSIOLOGICAL SOLUTION [Concomitant]
     Route: 042
     Dates: start: 20150624, end: 20150624
  50. CALCIJEX [Concomitant]
     Active Substance: CALCITRIOL
     Indication: RENAL OSTEODYSTROPHY
  51. POTASSIUM CANRENOATE [Concomitant]
     Active Substance: CANRENOATE POTASSIUM
     Dosage: 200 MG, SINGLE
     Route: 042
     Dates: start: 20150609, end: 20150609
  52. VITAMIN K1 [Concomitant]
     Active Substance: PHYTONADIONE
     Dosage: 10 MG, SINGLE
     Route: 048
     Dates: start: 20150609, end: 20150609
  53. CHOLESTYRAMINE. [Concomitant]
     Active Substance: CHOLESTYRAMINE
     Indication: HEPATIC SEQUESTRATION
     Dosage: 4 G, SINGLE
     Route: 048
     Dates: start: 20150616, end: 20150616
  54. BISOPROLOLO [Concomitant]
     Active Substance: BISOPROLOL FUMARATE
     Dosage: 2.5 MG, BID
     Route: 048
     Dates: start: 20150623, end: 20150623
  55. PHYSIOLOGICAL SOLUTION [Concomitant]
     Route: 042
     Dates: start: 20150609, end: 20150609
  56. PHYSIOLOGICAL SOLUTION [Concomitant]
     Route: 042
     Dates: start: 20150724, end: 20150729
  57. CANRENONE [Concomitant]
     Active Substance: CANRENONE
     Dosage: 50 MG, SINGLE
     Route: 048
     Dates: start: 20150608, end: 20150608
  58. ALBUMIN HUMAN [Concomitant]
     Active Substance: ALBUMIN (HUMAN)
     Dosage: 50 ML, TID
     Route: 042
     Dates: start: 20150606, end: 20150606
  59. K CL RETARD [Concomitant]
     Indication: HYPOKALAEMIA
     Dosage: 1200 MG, SINGLE
     Route: 048
     Dates: start: 20150608, end: 20150608
  60. POTASSIUM CANRENOATE [Concomitant]
     Active Substance: CANRENOATE POTASSIUM
     Indication: HYPOKALAEMIA
     Dosage: 200 MG, SINGLE
     Route: 042
     Dates: start: 20150606, end: 20150606
  61. POTASSIUM CHLORIDE. [Concomitant]
     Active Substance: POTASSIUM CHLORIDE
     Indication: HYPOKALAEMIA
     Dosage: 40 MEQ, SINGLE
     Route: 042
     Dates: start: 20150607, end: 20150607
  62. POTASSIUM CHLORIDE. [Concomitant]
     Active Substance: POTASSIUM CHLORIDE
     Dosage: 40 MEQ, SINGLE
     Route: 042
     Dates: start: 20150609, end: 20150609
  63. CALCIUM CARBONATE. [Concomitant]
     Active Substance: CALCIUM CARBONATE
     Dosage: 1000 MG, SINGLE
     Route: 048
     Dates: start: 20150701
  64. PERFALGAN [Concomitant]
     Active Substance: ACETAMINOPHEN
     Indication: PYREXIA
     Dosage: 1 G, PRN
     Route: 042
     Dates: start: 20150619, end: 20150619
  65. FUROSEMIDE. [Concomitant]
     Active Substance: FUROSEMIDE
     Dosage: 20 MG, SINGLE
     Route: 042
     Dates: start: 20150611, end: 20150611

REACTIONS (1)
  - Nephrotic syndrome [Recovered/Resolved]

NARRATIVE: CASE EVENT DATE: 20150515
